FAERS Safety Report 5420276-1 (Version None)
Quarter: 2007Q3

REPORT INFORMATION
  Report Type: 
  Country: None (occurrence: None)
  Receive Date: 20070815
  Receipt Date: 20070806
  Transmission Date: 20080115
  Serious: Yes (Other)
  Sender: FDA-Public Use
  Company Number: 2007JP001510

PATIENT
  Age: 75 Year
  Sex: Male
  Weight: 52 kg

DRUGS (3)
  1. VESICARE [Suspect]
     Indication: HYPERTONIC BLADDER
     Dosage: 5 MG, UID/QD, ORAL
     Route: 048
     Dates: start: 20070315, end: 20070321
  2. TAMSULOSIN HCL [Concomitant]
  3. MICARDIS [Concomitant]

REACTIONS (2)
  - DRUG ERUPTION [None]
  - DYSPNOEA [None]
